FAERS Safety Report 12201133 (Version 1)
Quarter: 2016Q1

REPORT INFORMATION
  Report Type: Spontaneous
  Country: US (occurrence: US)
  Receive Date: 20160322
  Receipt Date: 20160322
  Transmission Date: 20160526
  Serious: No
  Sender: FDA-Public Use
  Company Number: US-SA-2015SA092855

PATIENT
  Age: 63 Year

DRUGS (1)
  1. NASACORT ALLERGY 24HR [Suspect]
     Active Substance: TRIAMCINOLONE ACETONIDE
     Indication: ALLERGIC SINUSITIS
     Route: 065

REACTIONS (3)
  - Nasal discomfort [Not Recovered/Not Resolved]
  - Nasal odour [Not Recovered/Not Resolved]
  - Head discomfort [Not Recovered/Not Resolved]
